FAERS Safety Report 19013061 (Version 2)
Quarter: 2025Q3

REPORT INFORMATION
  Report Type: Spontaneous
  Country: EU (occurrence: EU)
  Receive Date: 20210316
  Receipt Date: 20250910
  Transmission Date: 20251020
  Serious: Yes (Hospitalization, Other)
  Sender: PURDUE
  Company Number: EU-GLAXOSMITHKLINE-FR2021GSK049357

PATIENT
  Age: 47 Year
  Sex: Male

DRUGS (8)
  1. MORPHINE SULFATE [Suspect]
     Active Substance: MORPHINE SULFATE
     Indication: Product used for unknown indication
     Route: 065
  2. MIDOMAFETAMINE [Suspect]
     Active Substance: MIDOMAFETAMINE
     Indication: Product used for unknown indication
     Route: 065
  3. BENZOYLECGONINE [Suspect]
     Active Substance: BENZOYLECGONINE
     Indication: Product used for unknown indication
     Route: 065
  4. TENAMFETAMINE [Suspect]
     Active Substance: TENAMFETAMINE
     Indication: Product used for unknown indication
     Route: 065
  5. EPHEDRINE [Suspect]
     Active Substance: EPHEDRINE
     Indication: Cardiac arrest
     Route: 065
  6. EPHEDRINE [Suspect]
     Active Substance: EPHEDRINE
     Route: 065
  7. EPHEDRINE [Suspect]
     Active Substance: EPHEDRINE
     Route: 065
  8. DRONABINOL [Suspect]
     Active Substance: DRONABINOL
     Indication: Product used for unknown indication
     Route: 065

REACTIONS (9)
  - Gastric pneumatosis [Recovered/Resolved]
  - Mucosal necrosis [Recovered/Resolved]
  - Disseminated intravascular coagulation [Recovered/Resolved]
  - Hyperpyrexia [Recovered/Resolved]
  - Encephalopathy [Recovered/Resolved]
  - Inflammation [Recovered/Resolved]
  - Vasoconstriction [Recovered/Resolved]
  - Ischaemia [Recovered/Resolved]
  - Emphysema [Recovered/Resolved]
